FAERS Safety Report 17376607 (Version 6)
Quarter: 2022Q2

REPORT INFORMATION
  Report Type: Spontaneous
  Country: CA (occurrence: CA)
  Receive Date: 20200206
  Receipt Date: 20220616
  Transmission Date: 20220720
  Serious: Yes (Other)
  Sender: FDA-Public Use
  Company Number: CA-GLAXOSMITHKLINE-CA2020AMR018088

PATIENT

DRUGS (13)
  1. BENLYSTA [Suspect]
     Active Substance: BELIMUMAB
     Indication: Systemic lupus erythematosus
     Dosage: UNK, 200MG/VIAL
     Route: 058
  2. BELIMUMAB [Suspect]
     Active Substance: BELIMUMAB
     Indication: Systemic lupus erythematosus
     Dosage: UNK
  3. CIPRO [Suspect]
     Active Substance: CIPROFLOXACIN HYDROCHLORIDE
     Indication: Product used for unknown indication
     Dosage: UNK
  4. MACROBID [Suspect]
     Active Substance: NITROFURANTOIN\NITROFURANTOIN MONOHYDRATE
     Indication: Nephrolithiasis
     Dosage: UNK
     Dates: end: 20200128
  5. CIPROFLOXACIN HYDROCHLORIDE [Suspect]
     Active Substance: CIPROFLOXACIN HYDROCHLORIDE
     Indication: Nephrolithiasis
     Dosage: UNK
  6. ACCUTANE [Suspect]
     Active Substance: ISOTRETINOIN
     Indication: Ear discomfort
     Dosage: UNK
  7. OLMESARTAN MEDOXOMIL [Suspect]
     Active Substance: OLMESARTAN MEDOXOMIL
     Indication: Blood pressure measurement
     Dosage: UNK
     Route: 048
  8. CYMBALTA [Suspect]
     Active Substance: DULOXETINE HYDROCHLORIDE
     Indication: Pain
     Dosage: 30 MG,UNK
  9. CYMBALTA [Suspect]
     Active Substance: DULOXETINE HYDROCHLORIDE
     Dosage: 60 MG,UNK
  10. PREDNISONE [Suspect]
     Active Substance: PREDNISONE
     Indication: Product used for unknown indication
     Dosage: UNK
  11. TYLENOL [Suspect]
     Active Substance: ACETAMINOPHEN
     Indication: Arthritis
     Dosage: UNK
  12. CLARITHROMYCIN [Suspect]
     Active Substance: CLARITHROMYCIN
     Indication: Nephrolithiasis
     Dosage: UNK
  13. ACCUTANE [Suspect]
     Active Substance: ISOTRETINOIN
     Indication: Ear discomfort
     Dosage: UNK

REACTIONS (32)
  - Nephrolithiasis [Recovered/Resolved]
  - Kidney infection [Recovered/Resolved]
  - SLE arthritis [Unknown]
  - Diabetes mellitus [Unknown]
  - Urine abnormality [Recovered/Resolved]
  - Renal disorder [Recovered/Resolved]
  - Pain [Recovered/Resolved]
  - Blood pressure increased [Recovered/Resolved]
  - Blood pressure decreased [Recovered/Resolved]
  - Joint dislocation [Recovered/Resolved]
  - Arthritis [Recovered/Resolved]
  - Hand deformity [Recovered/Resolved]
  - Personality change due to a general medical condition [Recovered/Resolved]
  - Loss of personal independence in daily activities [Recovered/Resolved]
  - Vein disorder [Recovered/Resolved]
  - Varicose vein [Recovered/Resolved]
  - Walking aid user [Recovered/Resolved]
  - Skin induration [Recovered/Resolved]
  - Blood cholesterol [Recovered/Resolved]
  - Hypersomnia [Recovered/Resolved]
  - Product dose omission issue [Recovered/Resolved]
  - Drug ineffective [Recovered/Resolved]
  - Nasopharyngitis [Unknown]
  - Multiple allergies [Unknown]
  - Poor quality sleep [Unknown]
  - Inflammation [Unknown]
  - Arthralgia [Unknown]
  - Calcinosis [Unknown]
  - Spinal disorder [Unknown]
  - Arthropathy [Unknown]
  - Gait disturbance [Unknown]
  - Social problem [Unknown]
